FAERS Safety Report 12712471 (Version 1)
Quarter: 2016Q3

REPORT INFORMATION
  Report Type: Report from Study
  Country: PL (occurrence: PL)
  Receive Date: 20160902
  Receipt Date: 20160902
  Transmission Date: 20161109
  Serious: Yes (Hospitalization, Other)
  Sender: FDA-Public Use
  Company Number: PL-CELLTRION INC.-2016PL004848

PATIENT

DRUGS (11)
  1. REMSIMA [Suspect]
     Active Substance: INFLIXIMAB
     Indication: CROHN^S DISEASE
     Dosage: 400 MG, SINGLE
     Route: 042
     Dates: start: 20160104, end: 20160104
  2. HYDROCORTISONE. [Concomitant]
     Active Substance: HYDROCORTISONE
     Indication: ANAPHYLAXIS PROPHYLAXIS
     Dosage: UNK
     Route: 042
     Dates: start: 20150730
  3. AMLODIPINE [Concomitant]
     Active Substance: AMLODIPINE BESYLATE
     Indication: HYPERTENSION
     Dosage: UNK, DAILY
     Route: 048
     Dates: start: 20160304
  4. REMSIMA [Suspect]
     Active Substance: INFLIXIMAB
     Dosage: 350 MG, UNK
     Route: 065
     Dates: start: 20160512, end: 20160512
  5. REMSIMA [Suspect]
     Active Substance: INFLIXIMAB
     Dosage: 350 MG, SINGLE
     Dates: start: 20160314, end: 20160314
  6. IRON DEXTRAN [Concomitant]
     Active Substance: IRON DEXTRAN
     Indication: ANAEMIA
     Dosage: 1 AMPOULE, DAILY
     Route: 042
     Dates: start: 20160303, end: 20160311
  7. SULFASALAZIN EN [Concomitant]
     Indication: CROHN^S DISEASE
     Dosage: 500 (UNKNOWN UNITS) 3X2
     Route: 048
     Dates: start: 20120917
  8. RAMIPRILUM [Concomitant]
     Indication: HYPERTENSION
     Dosage: UNK, DAILY
     Route: 048
     Dates: start: 20150812
  9. CONTIX                             /01263201/ [Concomitant]
     Indication: DYSPEPSIA
     Dosage: 1X1
     Route: 048
     Dates: start: 20150914
  10. IRON PROTEINATOSUCCINATE [Concomitant]
     Indication: ANAEMIA
     Dosage: UNK, DAILY
     Route: 048
     Dates: start: 20160104
  11. BLOOD CELLS, PACKED HUMAN [Concomitant]
     Active Substance: HUMAN BLOOD CELLS
     Indication: ANAEMIA
     Dosage: 2 UNITS, ONCE A DAY
     Route: 042
     Dates: start: 20160303, end: 20160304

REACTIONS (1)
  - Inflammatory myofibroblastic tumour [Recovered/Resolved]

NARRATIVE: CASE EVENT DATE: 20160308
